FAERS Safety Report 16340460 (Version 1)
Quarter: 2019Q2

REPORT INFORMATION
  Report Type: Spontaneous
  Country: US (occurrence: US)
  Receive Date: 20190522
  Receipt Date: 20190522
  Transmission Date: 20190711
  Serious: Yes (Other)
  Sender: FDA-Public Use
  Company Number: US-TEVA-2019-US-1007525

PATIENT
  Age: 6 Year
  Sex: Female

DRUGS (4)
  1. CLOBETASOL [Suspect]
     Active Substance: CLOBETASOL
     Indication: LICHEN SCLEROSUS
     Dosage: APPLIED ONCE DAILY
     Route: 061
  2. TRIAMCINOLONE [Suspect]
     Active Substance: TRIAMCINOLONE
     Indication: LICHEN SCLEROSUS
     Route: 061
  3. CLOBETASOL [Suspect]
     Active Substance: CLOBETASOL
     Indication: LICHEN SCLEROSUS
     Dosage: TWICE DAILY
     Route: 061
  4. DESONIDE. [Suspect]
     Active Substance: DESONIDE
     Indication: LICHEN SCLEROSUS
     Route: 061

REACTIONS (1)
  - Cushing^s syndrome [Recovered/Resolved]
